FAERS Safety Report 24726023 (Version 1)
Quarter: 2024Q4

REPORT INFORMATION
  Report Type: Spontaneous
  Country: FR (occurrence: FR)
  Receive Date: 20241212
  Receipt Date: 20241212
  Transmission Date: 20250114
  Serious: Yes (Other)
  Sender: TEVA
  Company Number: None

PATIENT
  Age: 27 Year
  Sex: Male
  Weight: 91.2 kg

DRUGS (1)
  1. LEVOFLOXACIN [Suspect]
     Active Substance: LEVOFLOXACIN
     Indication: Postoperative wound infection
     Route: 048
     Dates: start: 20241120, end: 20241121

REACTIONS (1)
  - Hallucination, auditory [Recovered/Resolved]

NARRATIVE: CASE EVENT DATE: 20241121
